FAERS Safety Report 10244207 (Version 1)
Quarter: 2014Q1

REPORT INFORMATION
  Report Type: Spontaneous
  Country: US (occurrence: None)
  Receive Date: 20140306
  Receipt Date: 20140306
  Transmission Date: 20141002
  Serious: Yes (Hospitalization)
  Sender: FDA-Public Use
  Company Number: 163-21880-13081997

PATIENT
  Age: 77 Year
  Sex: Female
  Weight: 92.08 kg

DRUGS (1)
  1. REVLIMID (LENALIDOMIDE) (25 MILLIGRAM CAPSULES) [Suspect]
     Indication: PLASMA CELL MYELOMA
     Dosage: 25MG, 1 IN 1D PO
     Route: 048
     Dates: start: 200906

REACTIONS (2)
  - Urinary tract infection [None]
  - Confusional state [None]
